FAERS Safety Report 6242149-7 (Version None)
Quarter: 2009Q2

REPORT INFORMATION
  Report Type: 
  Country: None (occurrence: None)
  Receive Date: 20090618
  Receipt Date: 20090618
  Transmission Date: 20091009
  Serious: No
  Sender: FDA-Public Use
  Company Number: None

PATIENT
  Age: 65 Year
  Sex: Male
  Weight: 107.0489 kg

DRUGS (6)
  1. CYCLOSPORINE [Suspect]
     Indication: PROPHYLAXIS
     Dosage: ONE ML DAILY 047
     Dates: start: 20081201
  2. CYCLOSPORINE [Suspect]
     Indication: TRANSPLANT REJECTION
     Dosage: ONE ML DAILY 047
     Dates: start: 20081201
  3. CELLCEPT [Concomitant]
  4. NORVASC [Concomitant]
  5. SIMVASTATIN [Concomitant]
  6. ALLOPURINOL [Concomitant]

REACTIONS (3)
  - DRUG LEVEL BELOW THERAPEUTIC [None]
  - INCORRECT DOSE ADMINISTERED [None]
  - SYRINGE ISSUE [None]
